FAERS Safety Report 14988067 (Version 1)
Quarter: 2018Q2

REPORT INFORMATION
  Report Type: Spontaneous
  Country: US (occurrence: US)
  Receive Date: 20180519
  Receipt Date: 20180519
  Transmission Date: 20180711
  Serious: Yes (Other)
  Sender: FDA-Public Use
  Company Number: None

PATIENT
  Age: 48 Year
  Sex: Female

DRUGS (11)
  1. GABAPENTIN. [Concomitant]
     Active Substance: GABAPENTIN
     Dates: start: 20180518
  2. BACLOFEN. [Concomitant]
     Active Substance: BACLOFEN
     Dates: start: 20180518
  3. METOPROLOL TARTRATE. [Concomitant]
     Active Substance: METOPROLOL TARTRATE
     Dates: start: 20180518
  4. BLISOVIFE [Concomitant]
     Dates: start: 20180518
  5. LISINOPRIL. [Concomitant]
     Active Substance: LISINOPRIL
     Dates: start: 20180518
  6. OCREVUS [Suspect]
     Active Substance: OCRELIZUMAB
     Indication: MULTIPLE SCLEROSIS
  7. VITAMIN D3 [Concomitant]
     Active Substance: CHOLECALCIFEROL
     Dates: start: 20180518
  8. MULTIVITAMIN WOMENS [Concomitant]
     Dates: start: 20180518
  9. NUVIGIL [Concomitant]
     Active Substance: ARMODAFINIL
     Dates: start: 20180518
  10. AMPYRA [Concomitant]
     Active Substance: DALFAMPRIDINE
  11. SYNTHROID [Concomitant]
     Active Substance: LEVOTHYROXINE SODIUM
     Dates: start: 20180518

REACTIONS (1)
  - Drug ineffective [None]
